FAERS Safety Report 20821195 (Version 1)
Quarter: 2022Q2

REPORT INFORMATION
  Report Type: Spontaneous
  Country: US (occurrence: US)
  Receive Date: 20220512
  Receipt Date: 20220512
  Transmission Date: 20220721
  Serious: Yes (Other)
  Sender: FDA-Public Use
  Company Number: US-SAMSUNG BIOEPIS-SB-2022-11250

PATIENT
  Age: 44 Year
  Sex: Male

DRUGS (8)
  1. INFLIXIMAB [Suspect]
     Active Substance: INFLIXIMAB
     Indication: Uveitis
     Dosage: UNKNOWN
     Route: 065
  2. INFLIXIMAB [Suspect]
     Active Substance: INFLIXIMAB
     Indication: Behcet^s syndrome
  3. ADALIMUMAB [Suspect]
     Active Substance: ADALIMUMAB
     Indication: Uveitis
     Route: 065
  4. ADALIMUMAB [Suspect]
     Active Substance: ADALIMUMAB
     Indication: Behcet^s syndrome
     Route: 065
  5. METHOTREXATE [Concomitant]
     Active Substance: METHOTREXATE
     Indication: Uveitis
     Route: 048
  6. METHOTREXATE [Concomitant]
     Active Substance: METHOTREXATE
     Indication: Behcet^s syndrome
  7. PREDNISONE [Concomitant]
     Active Substance: PREDNISONE
     Indication: Uveitis
     Dosage: UNKNOWN
     Route: 065
  8. PREDNISONE [Concomitant]
     Active Substance: PREDNISONE
     Indication: Behcet^s syndrome
     Dosage: TAPERED DOSE
     Route: 065

REACTIONS (5)
  - Uveitis [Recovered/Resolved]
  - Behcet^s syndrome [Recovered/Resolved]
  - Drug specific antibody present [Unknown]
  - Treatment failure [Unknown]
  - Off label use [Unknown]
